FAERS Safety Report 8102611 (Version 2)
Quarter: 2013Q4

REPORT INFORMATION
  Report Type: Spontaneous
  Country: US (occurrence: US)
  Receive Date: 20110823
  Receipt Date: 20131217
  Transmission Date: 20140711
  Serious: Yes (Other)
  Sender: FDA-Public Use
  Company Number: US-GLAXOSMITHKLINE-A0931880A

PATIENT
  Age: 40 Year
  Sex: Female

DRUGS (3)
  1. ADVAIR [Suspect]
     Indication: ASTHMA
     Dosage: 1PUFF PER DAY
     Route: 055
     Dates: start: 200507
  2. CLARITIN [Concomitant]
  3. XOPENEX [Concomitant]

REACTIONS (5)
  - Asthma [Unknown]
  - Underdose [Unknown]
  - Product quality issue [Unknown]
  - Drug ineffective [Unknown]
  - Dyspnoea [Recovered/Resolved]
